FAERS Safety Report 4860286-6 (Version None)
Quarter: 2005Q4

REPORT INFORMATION
  Report Type: 
  Country: None (occurrence: None)
  Receive Date: 20051215
  Receipt Date: 20051206
  Transmission Date: 20060501
  Serious: Yes (Other)
  Sender: FDA-Public Use
  Company Number: 2005164286

PATIENT
  Age: 19 Year
  Sex: Female
  Weight: 72.5755 kg

DRUGS (1)
  1. DRAMAMINE [Suspect]
     Dosage: 10 TABS ONCE, ORAL
     Route: 048
     Dates: start: 20051206, end: 20051206

REACTIONS (2)
  - FEELING ABNORMAL [None]
  - OVERDOSE [None]
